FAERS Safety Report 4367897-5 (Version None)
Quarter: 2004Q2

REPORT INFORMATION
  Report Type: 
  Country: None (occurrence: None)
  Receive Date: 20040601
  Receipt Date: 20040601
  Transmission Date: 20050107
  Serious: Yes (Other)
  Sender: FDA-Public Use
  Company Number: None

PATIENT
  Age: 15 Year
  Sex: Male
  Weight: 68.0396 kg

DRUGS (2)
  1. FORADIL [Suspect]
     Indication: ASTHMA
     Dosage: 12 MCG 2 TIMES RESPIRATORY
     Route: 055
     Dates: start: 20040315, end: 20040415
  2. SEREVENT [Suspect]
     Dosage: 2 TIMES RESPIRATORY
     Route: 055
     Dates: start: 20040204, end: 20040204

REACTIONS (4)
  - ASTHMA [None]
  - DYSPNOEA [None]
  - PHARMACEUTICAL PRODUCT COMPLAINT [None]
  - THROAT TIGHTNESS [None]
